FAERS Safety Report 9000903 (Version 1)
Quarter: 2013Q1

REPORT INFORMATION
  Report Type: Spontaneous
  Country: ES (occurrence: ES)
  Receive Date: 20130107
  Receipt Date: 20130107
  Transmission Date: 20140127
  Serious: Yes (Hospitalization)
  Sender: FDA-Public Use
  Company Number: PHHY2013ES001175

PATIENT
  Age: 79 Year
  Sex: Male

DRUGS (6)
  1. ZOMETA [Suspect]
     Indication: METASTASES TO BONE
     Dosage: UNK UKN, UNK
     Route: 042
     Dates: start: 20120529, end: 20120529
  2. METAMIZOL [Concomitant]
     Indication: OSTEOARTHRITIS
     Dosage: UNK UKN, UNK
     Dates: start: 2010
  3. PREDNISONE [Concomitant]
     Indication: PROSTATE CANCER METASTATIC
     Dosage: UNK UKN, UNK
     Dates: start: 20120519
  4. IBUPROFEN [Concomitant]
     Indication: OSTEOARTHRITIS
     Dosage: UNK UKN, UNK
     Dates: start: 2010
  5. IDEOS UNIDIA [Concomitant]
     Dosage: UNK UKN, UNK
     Dates: start: 20120529, end: 20120604
  6. ZYTIGA [Concomitant]
     Indication: PROSTATE CANCER METASTATIC
     Dosage: UNK UKN, UNK
     Dates: start: 20120519

REACTIONS (4)
  - General physical health deterioration [Recovered/Resolved]
  - Depressed level of consciousness [Recovered/Resolved]
  - Hypocalcaemia [Recovered/Resolved]
  - Hypokalaemia [Recovered/Resolved]
